FAERS Safety Report 5564862-7 (Version None)
Quarter: 2007Q4

REPORT INFORMATION
  Report Type: 
  Country: None (occurrence: None)
  Receive Date: 20071218
  Receipt Date: 20050927
  Transmission Date: 20080405
  Serious: Yes (Other)
  Sender: FDA-Public Use
  Company Number: GB-JNJFOC-20071201630

PATIENT
  Age: 74 Year
  Sex: Male

DRUGS (3)
  1. HALOPERIDOL [Suspect]
     Indication: SCHIZOPHRENIA
     Route: 048
  2. ORAL HYPOGLYCAEMICS [Concomitant]
     Indication: DIABETES MELLITUS
     Route: 048
  3. SALICYLATES [Concomitant]
     Route: 065

REACTIONS (2)
  - EXTRAPYRAMIDAL DISORDER [None]
  - WEIGHT INCREASED [None]
